FAERS Safety Report 6865464-2 (Version None)
Quarter: 2010Q3

REPORT INFORMATION
  Report Type: 
  Country: None (occurrence: None)
  Receive Date: 20100721
  Receipt Date: 20080606
  Transmission Date: 20110219
  Serious: Yes (Other)
  Sender: FDA-Public Use
  Company Number: US-PFIZER INC-2008034875

PATIENT
  Age: 29 Year
  Sex: Male
  Weight: 104 kg

DRUGS (1)
  1. CHANTIX [Suspect]
     Indication: SMOKING CESSATION THERAPY
     Route: 048
     Dates: start: 20080205, end: 20080317

REACTIONS (2)
  - AGGRESSION [None]
  - AMNESIA [None]
